FAERS Safety Report 5657432-3 (Version None)
Quarter: 2008Q1

REPORT INFORMATION
  Report Type: 
  Country: None (occurrence: None)
  Receive Date: 20080310
  Receipt Date: 20080227
  Transmission Date: 20080703
  Serious: Yes (Other)
  Sender: FDA-Public Use
  Company Number: US-PFIZER INC-2008012443

PATIENT
  Sex: Female
  Weight: 66.2 kg

DRUGS (5)
  1. LYRICA [Suspect]
     Indication: FIBROMYALGIA
     Route: 048
  2. XANAX [Concomitant]
  3. VICODIN [Concomitant]
  4. CRESTOR [Concomitant]
  5. PAXIL [Concomitant]

REACTIONS (11)
  - FEELING ABNORMAL [None]
  - GAIT DISTURBANCE [None]
  - HEADACHE [None]
  - INSOMNIA [None]
  - MALAISE [None]
  - MUSCULAR WEAKNESS [None]
  - PAIN [None]
  - PARALYSIS [None]
  - RASH [None]
  - SNEEZING [None]
  - SWELLING [None]
